FAERS Safety Report 5414766-5 (Version None)
Quarter: 2007Q3

REPORT INFORMATION
  Report Type: 
  Country: None (occurrence: None)
  Receive Date: 20070815
  Receipt Date: 20070803
  Transmission Date: 20080115
  Serious: Yes (Death)
  Sender: FDA-Public Use
  Company Number: BE-JNJFOC-20040300157

PATIENT
  Sex: Female

DRUGS (4)
  1. RETAVASE [Suspect]
     Route: 042
  2. RETAVASE [Suspect]
     Indication: ACUTE MYOCARDIAL INFARCTION
     Route: 042
  3. ABCIXIMAB [Suspect]
     Route: 042
  4. ABCIXIMAB [Suspect]
     Indication: ACUTE MYOCARDIAL INFARCTION
     Route: 042

REACTIONS (1)
  - PULMONARY HAEMORRHAGE [None]
